FAERS Safety Report 24790370 (Version 1)
Quarter: 2024Q4

REPORT INFORMATION
  Report Type: Spontaneous
  Country: FR (occurrence: FR)
  Receive Date: 20241230
  Receipt Date: 20241230
  Transmission Date: 20250115
  Serious: Yes (Hospitalization, Other)
  Sender: BAXTER
  Company Number: None

PATIENT
  Age: 61 Year
  Sex: Female
  Weight: 52 kg

DRUGS (1)
  1. IFOSFAMIDE [Suspect]
     Active Substance: IFOSFAMIDE
     Indication: Sarcoma uterus
     Dosage: 4000 MG (NUMBER OF UNITS IN THE INTERVAL: 1; DEFINITION OF THE TIME INTERVAL UNIT: CYCLICAL; DURATIO
     Route: 041
     Dates: start: 20241214, end: 20241214

REACTIONS (3)
  - Hallucination [Recovering/Resolving]
  - Suicide threat [Recovering/Resolving]
  - Thinking abnormal [Recovering/Resolving]

NARRATIVE: CASE EVENT DATE: 20241215
